FAERS Safety Report 10152356 (Version 2)
Quarter: 2014Q2

REPORT INFORMATION
  Report Type: Spontaneous
  Country: US (occurrence: US)
  Receive Date: 20140505
  Receipt Date: 20140523
  Transmission Date: 20141212
  Serious: Yes (Other)
  Sender: FDA-Public Use
  Company Number: US-BAYER-2014-064518

PATIENT
  Age: 30 Year
  Sex: Female

DRUGS (1)
  1. MIRENA [Suspect]
     Indication: MENORRHAGIA
     Dosage: 20 MCG/24HR, CONT
     Route: 015
     Dates: start: 20131120, end: 2013

REACTIONS (14)
  - Dysmenorrhoea [None]
  - Pain [None]
  - Device expulsion [None]
  - Vaginitis bacterial [None]
  - Vaginal odour [None]
  - Menstruation irregular [Not Recovered/Not Resolved]
  - Vaginal haemorrhage [None]
  - Post procedural haemorrhage [None]
  - Pelvic pain [None]
  - Abdominal pain [None]
  - Uterine leiomyoma [None]
  - Procedural pain [None]
  - Device use error [None]
  - Drug ineffective [None]
